FAERS Safety Report 5054742-8 (Version None)
Quarter: 2006Q3

REPORT INFORMATION
  Report Type: 
  Country: None (occurrence: None)
  Receive Date: 20060719
  Receipt Date: 20060710
  Transmission Date: 20061208
  Serious: Yes (Other)
  Sender: FDA-Public Use
  Company Number: PHEH2006US08805

PATIENT
  Age: 62 Year
  Sex: Male

DRUGS (2)
  1. SANDIMMUNE [Suspect]
     Indication: HEART TRANSPLANT
     Dosage: 100 MG, BID
     Route: 048
     Dates: start: 19910101, end: 20050101
  2. CYCLOSPORINE [Suspect]
     Indication: HEART TRANSPLANT
     Dosage: UNK, UNK
     Route: 048
     Dates: start: 20050101

REACTIONS (3)
  - DYSGEUSIA [None]
  - PARAESTHESIA ORAL [None]
  - VENTRICULAR EXTRASYSTOLES [None]
